FAERS Safety Report 7623365-6 (Version None)
Quarter: 2011Q3

REPORT INFORMATION
  Report Type: 
  Country: None (occurrence: None)
  Receive Date: 20110720
  Receipt Date: 20110705
  Transmission Date: 20111222
  Serious: Yes (Hospitalization)
  Sender: FDA-Public Use
  Company Number: CA-SANOFI-AVENTIS-2011SA044377

PATIENT
  Age: 68 Year
  Sex: Male
  Weight: 84 kg

DRUGS (9)
  1. AMLODIPINE [Concomitant]
  2. WARFARIN SODIUM [Concomitant]
     Dosage: 34 MG WEEKLY
  3. METOPROLOL TARTRATE [Concomitant]
  4. PERINDOPRIL ERBUMINE [Concomitant]
  5. FINASTERIDE [Concomitant]
  6. DABIGATRAN [Concomitant]
     Dates: start: 20110521
  7. DRONEDARONE HCL [Suspect]
     Indication: ATRIAL FIBRILLATION
     Route: 048
     Dates: start: 20110518
  8. ASPIRIN [Concomitant]
  9. THIAZIDES [Concomitant]

REACTIONS (3)
  - IMPLANTABLE DEFIBRILLATOR INSERTION [None]
  - SYNCOPE [None]
  - VENTRICULAR TACHYCARDIA [None]
